FAERS Safety Report 6164045-6 (Version None)
Quarter: 2009Q2

REPORT INFORMATION
  Report Type: 
  Country: None (occurrence: None)
  Receive Date: 20090422
  Receipt Date: 20090416
  Transmission Date: 20091009
  Serious: Yes (Other)
  Sender: FDA-Public Use
  Company Number: US-KINGPHARMUSA00001-K200900452

PATIENT
  Sex: Male

DRUGS (5)
  1. LEVOXYL [Suspect]
     Indication: HYPOTHYROIDISM
     Dosage: 125 MCG, QD
     Route: 048
     Dates: start: 20090226
  2. CLARITIN                           /00917501/ [Concomitant]
  3. CITALOPRAM HYDROBROMIDE [Concomitant]
  4. NAPROXEN [Concomitant]
     Dosage: UNK, PRN
  5. FLEXERIL [Concomitant]
     Dosage: UNK, PRN

REACTIONS (1)
  - ANAPHYLACTOID REACTION [None]
